FAERS Safety Report 5616160-0 (Version None)
Quarter: 2008Q1

REPORT INFORMATION
  Report Type: 
  Country: None (occurrence: None)
  Receive Date: 20080206
  Receipt Date: 20080131
  Transmission Date: 20080703
  Serious: Yes (Other)
  Sender: FDA-Public Use
  Company Number: AU-PFIZER INC-2008010645

PATIENT
  Sex: Male

DRUGS (2)
  1. LIPITOR [Suspect]
  2. LIPITOR [Suspect]

REACTIONS (2)
  - HEART VALVE CALCIFICATION [None]
  - OEDEMA PERIPHERAL [None]
